FAERS Safety Report 9241996 (Version 6)
Quarter: 2018Q2

REPORT INFORMATION
  Report Type: Report from Study
  Country: DE (occurrence: DE)
  Receive Date: 20130419
  Receipt Date: 20180426
  Transmission Date: 20180711
  Serious: Yes (Life-Threatening, Hospitalization, Disabling, Other)
  Sender: FDA-Public Use
  Company Number: DE-ROCHE-1214951

PATIENT
  Age: 65 Year
  Sex: Male
  Weight: 51 kg

DRUGS (3)
  1. BEVACIZUMAB. [Suspect]
     Active Substance: BEVACIZUMAB
     Indication: COLORECTAL CANCER METASTATIC
     Route: 042
     Dates: start: 20130129, end: 20130311
  2. XELODA [Suspect]
     Active Substance: CAPECITABINE
     Indication: COLORECTAL CANCER
     Dosage: DOSE: 3000-3500 MG
     Route: 065
     Dates: start: 20130129, end: 20130710
  3. LEVOFLOXACIN. [Concomitant]
     Active Substance: LEVOFLOXACIN
     Indication: BRONCHITIS
     Route: 048
     Dates: start: 20130404, end: 20130411

REACTIONS (2)
  - Renal failure [Recovered/Resolved with Sequelae]
  - Renal failure [Unknown]

NARRATIVE: CASE EVENT DATE: 20130129
